FAERS Safety Report 9152708 (Version 1)
Quarter: 2013Q1

REPORT INFORMATION
  Report Type: Spontaneous
  Country: BR (occurrence: BR)
  Receive Date: 20130308
  Receipt Date: 20130308
  Transmission Date: 20140127
  Serious: Yes (Other)
  Sender: FDA-Public Use
  Company Number: BR-ABBOTT-13P-020-1057301-00

PATIENT
  Age: 48 Year
  Sex: Female
  Weight: 56 kg

DRUGS (8)
  1. HUMIRA [Suspect]
     Indication: CROHN^S DISEASE
     Route: 058
     Dates: start: 201202, end: 201203
  2. HUMIRA [Suspect]
     Route: 058
  3. PENTASA [Concomitant]
     Indication: CROHN^S DISEASE
     Route: 048
     Dates: start: 2002
  4. SALBUTAMOL SULFATE [Concomitant]
     Indication: BRONCHITIS
     Route: 055
     Dates: start: 201210
  5. CLENIL [Concomitant]
     Indication: BRONCHITIS
     Route: 055
     Dates: start: 201210
  6. HYOSCINE BUTYLBROMIDE/DIPYRONE (BUSCOPAM COMPOSTO) [Concomitant]
     Indication: PAIN
     Dosage: 10MG + 250MG, AS NEEDED
     Route: 048
     Dates: start: 2002
  7. LUFTAL [Concomitant]
     Indication: FLATULENCE
     Dosage: 3 OR 4 TIMES A DAY
     Dates: start: 2011
  8. GINKGO BILOBA [Concomitant]
     Indication: PAIN IN EXTREMITY
     Dosage: AT NIGHT
     Route: 048
     Dates: start: 201210

REACTIONS (14)
  - Tuberculosis [Unknown]
  - Chest pain [Not Recovered/Not Resolved]
  - Dyspnoea [Not Recovered/Not Resolved]
  - Feeding disorder [Not Recovered/Not Resolved]
  - Hypotension [Not Recovered/Not Resolved]
  - Back pain [Not Recovered/Not Resolved]
  - Neck pain [Recovered/Resolved]
  - Dizziness [Recovered/Resolved]
  - Abdominal pain upper [Recovered/Resolved]
  - Pain in extremity [Recovered/Resolved]
  - Malaise [Unknown]
  - Blood pressure abnormal [Unknown]
  - Malaise [Unknown]
  - Nervousness [Unknown]
